FAERS Safety Report 8428021-2 (Version None)
Quarter: 2012Q2

REPORT INFORMATION
  Report Type: 
  Country: None (occurrence: None)
  Receive Date: 20120611
  Receipt Date: 20120530
  Transmission Date: 20120825
  Serious: Yes (Other)
  Sender: FDA-Public Use
  Company Number: DE-ELI_LILLY_AND_COMPANY-DE201205010020

PATIENT
  Sex: Male

DRUGS (5)
  1. ASPIRIN [Concomitant]
  2. METFORMIN HCL [Concomitant]
  3. BYDUREON [Suspect]
     Indication: DIABETES MELLITUS
     Dosage: 2 MG, UNK
     Route: 058
     Dates: start: 20111001
  4. SIMVASTATIN [Concomitant]
  5. ANALGESICS [Concomitant]
     Dosage: UNK

REACTIONS (4)
  - VISUAL IMPAIRMENT [None]
  - AORTIC STENOSIS [None]
  - NERVE COMPRESSION [None]
  - GINGIVAL INFECTION [None]
